FAERS Safety Report 9512353 (Version 2)
Quarter: 2013Q3

REPORT INFORMATION
  Report Type: Spontaneous
  Country: US (occurrence: US)
  Receive Date: 20130910
  Receipt Date: 20130910
  Transmission Date: 20140515
  Serious: Yes (Other)
  Sender: FDA-Public Use
  Company Number: US-SANOFI-AVENTIS-BMS19047380

PATIENT
  Sex: Female

DRUGS (1)
  1. AVAPRO TABS 300 MG [Suspect]
     Indication: HYPERTENSION
     Route: 048
     Dates: end: 20130819

REACTIONS (13)
  - Pollakiuria [Not Recovered/Not Resolved]
  - Hypertension [Not Recovered/Not Resolved]
  - Hypoacusis [Unknown]
  - Eye disorder [Unknown]
  - Dysgeusia [Unknown]
  - Abdominal discomfort [Unknown]
  - Feeling abnormal [Not Recovered/Not Resolved]
  - Chills [Not Recovered/Not Resolved]
  - Malaise [Not Recovered/Not Resolved]
  - Asthenia [Not Recovered/Not Resolved]
  - Mouth ulceration [Unknown]
  - Nausea [Unknown]
  - Musculoskeletal pain [Unknown]
